FAERS Safety Report 9050276 (Version 1)
Quarter: 2013Q1

REPORT INFORMATION
  Report Type: Spontaneous
  Country: US (occurrence: US)
  Receive Date: 20130205
  Receipt Date: 20130205
  Transmission Date: 20140127
  Serious: Yes (Death, Other)
  Sender: FDA-Public Use
  Company Number: US-PFIZER INC-2012240402

PATIENT
  Age: 57 Year
  Sex: Female
  Weight: 113.38 kg

DRUGS (8)
  1. MORPHINE SULFATE [Suspect]
     Dosage: UNK
     Route: 048
  2. OXYCODONE HYDROCHLORIDE [Suspect]
     Dosage: UNK
     Route: 048
  3. ALPRAZOLAM [Suspect]
     Dosage: UNK
  4. DIAZEPAM [Suspect]
     Dosage: UNK
  5. HYDROMORPHONE HYDROCHLORIDE [Suspect]
     Dosage: UNK
     Route: 048
  6. CODEINE [Suspect]
     Dosage: UNK
  7. MARIJUANA [Suspect]
     Dosage: UNK
  8. MIRTAZAPINE [Suspect]
     Dosage: UNK

REACTIONS (2)
  - Overdose [Fatal]
  - Substance abuse [Unknown]
